FAERS Safety Report 16095828 (Version 2)
Quarter: 2019Q1

REPORT INFORMATION
  Report Type: Spontaneous
  Country: CN (occurrence: CN)
  Receive Date: 20190320
  Receipt Date: 20190326
  Transmission Date: 20190418
  Serious: Yes (Death, Other)
  Sender: FDA-Public Use
  Company Number: CN-GILEAD-2019-0396978

PATIENT
  Age: 43 Year
  Sex: Male

DRUGS (5)
  1. SPIRONOLACTONE. [Concomitant]
     Active Substance: SPIRONOLACTONE
     Indication: ASCITES
  2. RIBAVIRIN. [Suspect]
     Active Substance: RIBAVIRIN
     Indication: CHRONIC HEPATITIS C
     Dosage: UNK UNK, Q8H
     Route: 065
     Dates: start: 20181228
  3. FUROSEMIDE. [Concomitant]
     Active Substance: FUROSEMIDE
     Indication: ASCITES
  4. EPCLUSA [Suspect]
     Active Substance: SOFOSBUVIR\VELPATASVIR
     Indication: CHRONIC HEPATITIS C
     Dosage: 1 DF, QD
     Route: 065
     Dates: start: 20181228, end: 20190101
  5. GLUCOBAY [Concomitant]
     Active Substance: ACARBOSE

REACTIONS (6)
  - Chest pain [Fatal]
  - Dry mouth [Unknown]
  - Haematochezia [Fatal]
  - Loss of consciousness [Fatal]
  - Upper gastrointestinal haemorrhage [Fatal]
  - Pain in extremity [Unknown]

NARRATIVE: CASE EVENT DATE: 20181229
